FAERS Safety Report 4750611-9 (Version None)
Quarter: 2005Q3

REPORT INFORMATION
  Report Type: 
  Country: None (occurrence: None)
  Receive Date: 20050823
  Receipt Date: 20010702
  Transmission Date: 20060218
  Serious: Yes (Hospitalization)
  Sender: FDA-Public Use
  Company Number: JP-ROCHE-263785

PATIENT
  Age: 41 Year
  Sex: Male
  Weight: 64 kg

DRUGS (12)
  1. SAQUINAVIR [Suspect]
     Indication: HIV INFECTION
     Route: 048
     Dates: start: 20000613, end: 20020523
  2. SAQUINAVIR [Suspect]
     Route: 048
     Dates: start: 20020829
  3. RTV [Suspect]
     Indication: HIV INFECTION
     Route: 048
     Dates: start: 20000613, end: 20011115
  4. 3TC [Suspect]
     Indication: HIV INFECTION
     Route: 048
     Dates: start: 20000613
  5. D4T [Suspect]
     Indication: HIV INFECTION
     Route: 048
     Dates: start: 20000613
  6. KALETRA [Suspect]
     Indication: HIV INFECTION
     Route: 048
     Dates: start: 20011116
  7. COTRIM [Concomitant]
     Indication: PROPHYLAXIS
     Route: 048
     Dates: start: 20000525, end: 20020509
  8. MYONAL [Concomitant]
     Indication: CEREBRAL INFARCTION
     Route: 048
     Dates: start: 20020626, end: 20020829
  9. BAYER EXTRA STRENGTH [Concomitant]
     Indication: CEREBRAL INFARCTION
     Route: 048
     Dates: start: 20020605
  10. RADICUT [Concomitant]
     Indication: CEREBRAL INFARCTION
     Route: 058
     Dates: start: 20020516, end: 20020529
  11. GLYCERIN [Concomitant]
     Indication: CEREBRAL INFARCTION
     Route: 058
     Dates: start: 20020516, end: 20020529
  12. NICHOLIN [Concomitant]
     Indication: CEREBRAL INFARCTION
     Route: 058
     Dates: start: 20020518, end: 20020529

REACTIONS (14)
  - CEREBRAL INFARCTION [None]
  - CONSTIPATION [None]
  - CYTOMEGALOVIRUS CHORIORETINITIS [None]
  - DIZZINESS [None]
  - GLAUCOMA [None]
  - HYPERTENSION [None]
  - HYPERTRIGLYCERIDAEMIA [None]
  - INSOMNIA [None]
  - ORAL CANDIDIASIS [None]
  - RETINAL DETACHMENT [None]
  - RETINOPATHY PROLIFERATIVE [None]
  - ULCERATIVE KERATITIS [None]
  - URINARY CASTS [None]
  - URINE ANALYSIS ABNORMAL [None]
